FAERS Safety Report 9083889 (Version 1)
Quarter: 2013Q1

REPORT INFORMATION
  Report Type: Spontaneous
  Country: US (occurrence: US)
  Receive Date: 20130218
  Receipt Date: 20130218
  Transmission Date: 20140127
  Serious: Yes (Other)
  Sender: FDA-Public Use
  Company Number: PHHY2011US60977

PATIENT
  Age: 32 Year
  Sex: Female
  Weight: 71.4 kg

DRUGS (24)
  1. GLEEVEC [Suspect]
     Indication: LANGERHANS^ CELL HISTIOCYTOSIS
     Dosage: 400 MG
     Route: 048
     Dates: start: 201101, end: 201107
  2. ZOFRAN [Concomitant]
     Dosage: 1 DF, EVERY 6 HOURS
     Route: 048
  3. DURAGESIC [Concomitant]
     Dosage: 100 UG/HR PATCH,1 PATCH ON TO THE SKIN EVERY 48 HOURS
     Route: 062
     Dates: start: 20110727
  4. DURAGESIC [Concomitant]
     Dosage: 25 UG/HR PATCH,1 PATCH ON TO THE SKIN EVERY 48 HOURS
     Route: 062
     Dates: start: 20110727
  5. LASIX [Concomitant]
     Dosage: 20 MG,DAILY
     Route: 048
     Dates: start: 20110727
  6. PROAIR HFA [Concomitant]
     Dosage: UNK,2 PUFF EVRY 6 HOURS
     Dates: start: 20110727
  7. KLONOPIN [Concomitant]
     Dosage: 1 MG, BID
     Dates: start: 20110727
  8. PYRIDIUM [Concomitant]
     Dosage: 200 MG, TID
     Route: 048
     Dates: start: 20110727
  9. ZANTAC [Concomitant]
     Dosage: 150 MG, BID
     Route: 048
     Dates: start: 20110727
  10. PHENERGAN [Concomitant]
     Dosage: UNK UKN, UNK
     Dates: start: 20110727
  11. ADVIL [Concomitant]
     Dosage: UNK UKN, UNK
     Route: 048
     Dates: start: 20110727
  12. PROVENTIL [Concomitant]
     Dosage: (2.5 MG/3ML) 0.083%,EVERY 6 HOURS
     Dates: start: 20110727
  13. PERCOCET [Concomitant]
     Dosage: (7.5-325MG)EVERY 4 HOURS
     Route: 048
     Dates: start: 20110727
  14. SYNTHYROID [Concomitant]
     Dosage: 75 UG, UNK
  15. ERGOCALCIFEROL [Concomitant]
     Dosage: 50000 U, UNK
  16. ZITHROMAX [Concomitant]
     Dosage: 500 MG, UNK
  17. MYCOBUTIN [Concomitant]
     Dosage: 150 MG, UNK
  18. MYAMBUTOL [Concomitant]
     Dosage: 400 MG, UNK
  19. FENTANYL [Concomitant]
     Dosage: 400 UG, UNK
  20. CORTEF [Concomitant]
     Dosage: 20 MG, UNK
  21. PREVACID [Concomitant]
     Dosage: 30 MG, UNK
  22. ZOVIRAX [Concomitant]
     Dosage: 800 MG, UNK
  23. SEROQUEL [Concomitant]
     Dosage: 100 MG, UNK
  24. NEURONTIN [Concomitant]
     Dosage: 300 MG, UNK

REACTIONS (20)
  - Pulmonary mass [Not Recovered/Not Resolved]
  - Secondary hypothyroidism [Not Recovered/Not Resolved]
  - Lung disorder [Not Recovered/Not Resolved]
  - Adrenal insufficiency [Not Recovered/Not Resolved]
  - Tremor [Unknown]
  - Ataxia [Unknown]
  - Nystagmus [Unknown]
  - Gastrooesophageal reflux disease [Not Recovered/Not Resolved]
  - Mycobacterium avium complex infection [Not Recovered/Not Resolved]
  - Gait disturbance [Unknown]
  - Vomiting [Unknown]
  - Nausea [Unknown]
  - Decreased appetite [Unknown]
  - Oedema peripheral [Unknown]
  - Drug ineffective [Unknown]
  - Weight decreased [Recovered/Resolved]
  - Cough [Not Recovered/Not Resolved]
  - Rash [Unknown]
  - Back pain [Unknown]
  - Depression [Unknown]
